FAERS Safety Report 8403087 (Version 4)
Quarter: 2013Q4

REPORT INFORMATION
  Report Type: Spontaneous
  Country: IL (occurrence: IL)
  Receive Date: 20120213
  Receipt Date: 20131106
  Transmission Date: 20140711
  Serious: Yes (Death)
  Sender: FDA-Public Use
  Company Number: IL-009507513-1201USA02918

PATIENT
  Age: 51 Year
  Sex: Male

DRUGS (3)
  1. JANUVIA [Suspect]
     Indication: DIABETES MELLITUS
     Dosage: 100 MG, UNK
     Route: 048
     Dates: start: 201111, end: 201111
  2. INSULIN [Concomitant]
     Indication: DIABETES MELLITUS
  3. GLUCOMIN [Concomitant]
     Indication: DIABETES MELLITUS

REACTIONS (2)
  - Death [Fatal]
  - Rash [Unknown]
